FAERS Safety Report 7038247-0 (Version None)
Quarter: 2010Q4

REPORT INFORMATION
  Report Type: 
  Country: None (occurrence: None)
  Receive Date: 20101011
  Receipt Date: 20091124
  Transmission Date: 20110411
  Serious: No
  Sender: FDA-Public Use
  Company Number: US-PFIZER INC-2009286376

PATIENT
  Sex: Female
  Weight: 53.1 kg

DRUGS (1)
  1. GABAPENTIN [Suspect]
     Indication: VESTIBULAR NEURONITIS
     Dosage: 300 MG, 3X/DAY
     Route: 048
     Dates: start: 20090901

REACTIONS (2)
  - CONTUSION [None]
  - SKIN INJURY [None]
